FAERS Safety Report 10163112 (Version 1)
Quarter: 2014Q2

REPORT INFORMATION
  Report Type: Spontaneous
  Country: US (occurrence: US)
  Receive Date: 20140509
  Receipt Date: 20140509
  Transmission Date: 20141212
  Serious: Yes (Hospitalization)
  Sender: FDA-Public Use
  Company Number: US-GLAXOSMITHKLINE-A1071535A

PATIENT
  Age: 18 Month
  Sex: Female

DRUGS (6)
  1. ADVAIR HFA [Suspect]
     Indication: ASTHMA
     Dosage: 2PUFF TWICE PER DAY
     Route: 055
  2. ALVESCO [Suspect]
     Indication: ASTHMA
     Route: 065
  3. XOPENEX [Concomitant]
  4. ZYRTEC [Concomitant]
  5. SINGULAIR [Concomitant]
  6. SERTRALINE [Concomitant]

REACTIONS (5)
  - Asthma [Recovered/Resolved]
  - Cough [Recovered/Resolved]
  - Sneezing [Recovered/Resolved]
  - Malaise [Recovered/Resolved]
  - Off label use [Unknown]
